FAERS Safety Report 9116563 (Version 2)
Quarter: 2014Q2

REPORT INFORMATION
  Report Type: Report from Study
  Country: FR (occurrence: FR)
  Receive Date: 20130225
  Receipt Date: 20140616
  Transmission Date: 20141212
  Serious: Yes (Hospitalization)
  Sender: FDA-Public Use
  Company Number: FR-ROCHE-1141915

PATIENT
  Age: 65 Year
  Sex: Female
  Weight: 75 kg

DRUGS (3)
  1. MYCOPHENOLATE MOFETIL [Suspect]
     Indication: RENAL TRANSPLANT
     Route: 048
     Dates: start: 20120726, end: 20120918
  2. PREDNISONE [Suspect]
     Indication: RENAL TRANSPLANT
     Route: 048
     Dates: start: 20120803, end: 20121017
  3. EVEROLIMUS [Suspect]
     Indication: RENAL TRANSPLANT
     Route: 048
     Dates: start: 20120830, end: 20120918

REACTIONS (3)
  - Renal failure acute [Recovered/Resolved]
  - Gastrointestinal disorder [Recovered/Resolved]
  - Renal impairment [Recovered/Resolved]
